FAERS Safety Report 25342720 (Version 2)
Quarter: 2025Q2

REPORT INFORMATION
  Report Type: Spontaneous
  Country: FI (occurrence: FI)
  Receive Date: 20250521
  Receipt Date: 20250602
  Transmission Date: 20250716
  Serious: Yes (Other)
  Sender: MYLAN
  Company Number: FI-MYLANLABS-2025M1042067

PATIENT
  Sex: Male

DRUGS (1)
  1. DYMISTA [Suspect]
     Active Substance: AZELASTINE HYDROCHLORIDE\FLUTICASONE PROPIONATE
     Indication: Product used for unknown indication
     Dosage: UNK, AM (ONLY IN THE MORNING DAILY)

REACTIONS (3)
  - Central serous chorioretinopathy [Unknown]
  - Visual impairment [Unknown]
  - Intentional product misuse [Unknown]
